FAERS Safety Report 12425675 (Version 2)
Quarter: 2016Q2

REPORT INFORMATION
  Report Type: Spontaneous
  Country: US (occurrence: US)
  Receive Date: 20160601
  Receipt Date: 20160614
  Transmission Date: 20160815
  Serious: No
  Sender: FDA-Public Use
  Company Number: US-PFIZER INC-2016283039

PATIENT
  Age: 64 Year
  Sex: Female
  Weight: 79 kg

DRUGS (1)
  1. ALPRAZOLAM. [Suspect]
     Active Substance: ALPRAZOLAM
     Dosage: 1 MG, DAILY (NIGHTLY)
     Route: 048
     Dates: start: 2013

REACTIONS (6)
  - Intentional product use issue [Unknown]
  - Influenza like illness [Unknown]
  - Malaise [Unknown]
  - Pain [Not Recovered/Not Resolved]
  - Depression [Unknown]
  - Insomnia [Not Recovered/Not Resolved]

NARRATIVE: CASE EVENT DATE: 201305
